FAERS Safety Report 24293489 (Version 1)
Quarter: 2024Q3

REPORT INFORMATION
  Report Type: Spontaneous
  Country: US (occurrence: None)
  Receive Date: 20240906
  Receipt Date: 20240906
  Transmission Date: 20241017
  Serious: No
  Sender: DOMPE FARMACEUTICI
  Company Number: US-FARMAPROD-202308-202401-0249

PATIENT
  Sex: Female

DRUGS (13)
  1. OXERVATE [Suspect]
     Active Substance: CENEGERMIN-BKBJ
     Indication: Neurotrophic keratopathy
     Route: 047
     Dates: start: 20231211
  2. SYSTANE (HYPROMELLOSE 2910 (4000 MPA.S)) [Concomitant]
     Active Substance: HYPROMELLOSE 2910 (4000 MPA.S)
     Dosage: 0.3 %-0.4%
  3. SYSTANE GEL [Concomitant]
  4. TRETINOIN [Concomitant]
     Active Substance: TRETINOIN
  5. ASPIRIN [Concomitant]
     Active Substance: ASPIRIN
  6. FISH OIL [Concomitant]
     Active Substance: FISH OIL
     Dosage: 100-160
  7. ACZONE [Concomitant]
     Active Substance: DAPSONE
  8. FLUTICASONE PROPIONATE [Concomitant]
     Active Substance: FLUTICASONE PROPIONATE
  9. ASPERCREME [Concomitant]
  10. MULTIVITAMIN 50 PLUS [Concomitant]
  11. CLINDAMYCIN-BENZOYL PEROXIDE [Concomitant]
  12. MELATONIN [Concomitant]
     Active Substance: MELATONIN
  13. ZYRTEC [Concomitant]
     Active Substance: CETIRIZINE HYDROCHLORIDE

REACTIONS (3)
  - Eye pain [Unknown]
  - Asthenopia [Unknown]
  - Drug ineffective [Unknown]
